FAERS Safety Report 5443980-8 (Version None)
Quarter: 2007Q3

REPORT INFORMATION
  Report Type: 
  Country: None (occurrence: None)
  Receive Date: 20070831
  Receipt Date: 20070817
  Transmission Date: 20080115
  Serious: Yes (Hospitalization)
  Sender: FDA-Public Use
  Company Number: 2007S1005440

PATIENT
  Age: 63 Year
  Sex: Female
  Weight: 50.8029 kg

DRUGS (4)
  1. INDAPAMIDE [Suspect]
     Indication: HYPERTENSION
     Dosage: 2.5 MG; EVERY MORNING; ORAL
     Route: 048
     Dates: start: 20030101
  2. ATENOLOL [Suspect]
     Indication: HYPERTENSION
     Dosage: 25 MG; ;ORAL
     Route: 048
     Dates: start: 20070101
  3. CLONAZEPAM [Concomitant]
  4. PREMARIN [Concomitant]

REACTIONS (10)
  - ANXIETY [None]
  - BLOOD PRESSURE INCREASED [None]
  - DEPRESSION [None]
  - DRUG INEFFECTIVE [None]
  - DYSGEUSIA [None]
  - LUNG INFECTION [None]
  - MALAISE [None]
  - OEDEMA [None]
  - PHARMACEUTICAL PRODUCT COMPLAINT [None]
  - THERAPEUTIC PRODUCT CONTAMINATION [None]
